FAERS Safety Report 8075348-2 (Version None)
Quarter: 2012Q1

REPORT INFORMATION
  Report Type: 
  Country: None (occurrence: None)
  Receive Date: 20120127
  Receipt Date: 20120119
  Transmission Date: 20120608
  Serious: Yes (Other)
  Sender: FDA-Public Use
  Company Number: US-BAYER-2011-042882

PATIENT
  Age: 32 Year
  Sex: Female
  Weight: 52.154 kg

DRUGS (4)
  1. YAZ [Suspect]
     Indication: CONTRACEPTION
     Dosage: UNK
     Route: 048
     Dates: start: 20071001, end: 20071211
  2. YAZ [Suspect]
     Indication: ACNE
  3. IBUPROFEN (ADVIL) [Concomitant]
     Indication: HEADACHE
     Dosage: 400 MG, UNK
     Dates: start: 20010101
  4. IBUPROFEN (ADVIL) [Concomitant]
     Indication: PAIN

REACTIONS (10)
  - ANXIETY [None]
  - NAUSEA [None]
  - DEEP VEIN THROMBOSIS [None]
  - PAIN IN EXTREMITY [None]
  - OEDEMA PERIPHERAL [None]
  - DIZZINESS [None]
  - FEAR [None]
  - EMOTIONAL DISTRESS [None]
  - HYPERHIDROSIS [None]
  - PAIN [None]
